FAERS Safety Report 4715618-6 (Version None)
Quarter: 2005Q3

REPORT INFORMATION
  Report Type: 
  Country: None (occurrence: None)
  Receive Date: 20050714
  Receipt Date: 20050704
  Transmission Date: 20060218
  Serious: Yes (Other)
  Sender: FDA-Public Use
  Company Number: GXKR2005GB01295

PATIENT
  Age: 33 Year
  Sex: Female
  Weight: 64 kg

DRUGS (19)
  1. RANITIDINE [Suspect]
     Indication: PREMEDICATION
     Dosage: 300 MG, ORAL
     Route: 048
  2. METOCLOPRAMIDE (NGX) (METOCLOPRAMIDE) TABLET [Suspect]
     Dosage: 10 MG, UNK
  3. REMIFENTANL (REMIFENTANIL) [Suspect]
     Indication: INDUCTION AND MAINTENANCE OF ANAESTHESIA
     Dosage: 2.4 MCG/KG, UNK (SEE IMAGE)
  4. SUXAMETHONIUM (SUXAMETHONIUM) [Suspect]
     Indication: INDUCTION AND MAINTENANCE OF ANAESTHESIA
     Dosage: 1.5 MG/KG, UNK
  5. SODIUM CITRATE [Suspect]
  6. ETOMIDATE [Suspect]
     Indication: INDUCTION OF ANAESTHESIA
     Dosage: 0.1 -0.2 MG/KG, UNK
  7. ISOFLURANE [Suspect]
     Dosage: 1-2%, RESPIRATORY
     Route: 055
  8. NITROUS OXIDE W/ OXYGEN [Suspect]
     Dosage: RESPIRATORY
     Route: 055
  9. OXYGEN (OXYGEN) [Suspect]
     Dosage: RESPIRATORY
     Route: 055
  10. VECURONIUM BROMIDE [Suspect]
     Dosage: 0.1 MG/KG, UNK
  11. OXYTOCIN 10 USP UNITS IN DEXTROSE 5% [Suspect]
     Dosage: INFUSION (SEE IMAGE)
  12. GENTAMICIN [Suspect]
  13. CEFUROXIME [Suspect]
  14. HARTMANN'S SOLUTION (CALCIUM CHLORIDE DIHYDRATE, POTASSIUM CHLORIDE, S [Suspect]
  15. MORPHINE [Concomitant]
  16. GLYCOPYRRONIUM BROMIDE [Concomitant]
  17. SODIUM CHLORIDE [Concomitant]
  18. ANALGESICS (NO INGREDIENTS/SUBSTANCES) [Concomitant]
  19. PROSTAGLANDINS (NO INGREDIENTS/SUBSTANCES) [Concomitant]

REACTIONS (7)
  - BRADYCARDIA [None]
  - DRUG EXPOSURE DURING PREGNANCY [None]
  - HAEMORRHAGE [None]
  - HYPOTENSION [None]
  - POSTPARTUM HAEMORRHAGE [None]
  - RETAINED PLACENTA OR MEMBRANES [None]
  - UTERINE ATONY [None]
